FAERS Safety Report 24407772 (Version 2)
Quarter: 2024Q4

REPORT INFORMATION
  Report Type: Spontaneous
  Country: US (occurrence: US)
  Receive Date: 20241007
  Receipt Date: 20241028
  Transmission Date: 20250115
  Serious: No
  Sender: GUERBET
  Company Number: US-GUERBET / LLC-US-20240110

PATIENT
  Age: 76 Year
  Sex: Female
  Weight: 51.25 kg

DRUGS (1)
  1. OPTIRAY 350 [Suspect]
     Active Substance: IOVERSOL
     Indication: Computerised tomogram
     Route: 042
     Dates: start: 20240710, end: 20240710

REACTIONS (1)
  - Hypersensitivity [Recovered/Resolved]

NARRATIVE: CASE EVENT DATE: 20240710
